FAERS Safety Report 5191042-X (Version None)
Quarter: 2006Q4

REPORT INFORMATION
  Report Type: 
  Country: None (occurrence: None)
  Receive Date: 20061226
  Receipt Date: 20061212
  Transmission Date: 20070319
  Serious: Yes (Other)
  Sender: FDA-Public Use
  Company Number: 2006SE06655

PATIENT
  Age: 58 Year
  Sex: Female

DRUGS (4)
  1. TENORMIN [Suspect]
     Indication: HYPERTENSION
     Route: 048
  2. TRIOBE [Concomitant]
  3. LEVAXIN [Concomitant]
  4. INDERAL [Concomitant]

REACTIONS (4)
  - DRY EYE [None]
  - FORMICATION [None]
  - SINUS DISORDER [None]
  - WHITE BLOOD CELL COUNT DECREASED [None]
